FAERS Safety Report 8916537 (Version 1)
Quarter: 2012Q4

REPORT INFORMATION
  Report Type: 
  Country: IT (occurrence: IT)
  Receive Date: 20121120
  Receipt Date: 20121120
  Transmission Date: 20130627
  Serious: Yes (Hospitalization)
  Sender: FDA-Public Use
  Company Number: IT-TEVA-369991ISR

PATIENT
  Age: 29 Year
  Sex: Female

DRUGS (2)
  1. ALPRAZOLAM [Suspect]
     Dosage: 15 Milligram Daily;
     Route: 048
     Dates: start: 20120731, end: 20120731
  2. ALCOVER [Suspect]
     Dosage: 140 ml Daily; 17.5%
     Route: 048
     Dates: start: 20120731, end: 20120731

REACTIONS (3)
  - Drug abuse [Recovered/Resolved]
  - Bradycardia [Recovered/Resolved]
  - Coma [Recovered/Resolved]
